FAERS Safety Report 8767184 (Version 1)
Quarter: 2012Q4

REPORT INFORMATION
  Report Type: Report from Study
  Country: US (occurrence: US)
  Receive Date: 20120904
  Receipt Date: 20120904
  Transmission Date: 20130627
  Serious: Yes (Hospitalization)
  Sender: FDA-Public Use
  Company Number: US-GLAXOSMITHKLINE-A0918166A

PATIENT
  Age: 67 Year
  Sex: Female
  Weight: 70.7 kg

DRUGS (4)
  1. PAZOPANIB [Suspect]
     Indication: BREAST CANCER
     Dosage: 800MG Per day
     Route: 048
     Dates: start: 20110301
  2. PACLITAXEL [Suspect]
     Indication: BREAST CANCER
     Dosage: 80MGM2 Cyclic
     Route: 042
     Dates: start: 20110301
  3. DOXORUBICIN [Suspect]
     Indication: BREAST CANCER
     Dosage: 60MGM2 Cyclic
     Route: 042
     Dates: end: 20110208
  4. CYCLOPHOSPHAMIDE [Suspect]
     Indication: BREAST CANCER
     Dosage: 600MGM2 Cyclic
     Route: 042
     Dates: end: 20110208

REACTIONS (1)
  - Pulmonary embolism [Recovered/Resolved]
